FAERS Safety Report 7591003-7 (Version None)
Quarter: 2011Q3

REPORT INFORMATION
  Report Type: 
  Country: None (occurrence: None)
  Receive Date: 20110705
  Receipt Date: 20110628
  Transmission Date: 20111222
  Serious: Yes (Death, Other)
  Sender: FDA-Public Use
  Company Number: US-PFIZER INC-2011097991

PATIENT
  Sex: Female

DRUGS (2)
  1. EFFEXOR [Suspect]
  2. GABAPENTIN [Suspect]
     Dosage: UNK

REACTIONS (1)
  - DEATH [None]
